FAERS Safety Report 6382258-5 (Version None)
Quarter: 2009Q3

REPORT INFORMATION
  Report Type: 
  Country: None (occurrence: None)
  Receive Date: 20090930
  Receipt Date: 20090925
  Transmission Date: 20100115
  Serious: Yes (Life-Threatening, Hospitalization)
  Sender: FDA-Public Use
  Company Number: JP-ASTRAZENECA-2009SE06707

PATIENT
  Age: 28663 Day
  Sex: Male

DRUGS (8)
  1. OMEPRAL [Suspect]
     Indication: GASTRIC ULCER
     Route: 048
     Dates: start: 20081227, end: 20090728
  2. METHYCOOL [Suspect]
     Route: 048
     Dates: end: 20090807
  3. NEUROVITAN [Suspect]
     Route: 048
     Dates: end: 20090807
  4. EVIPROSTAT [Suspect]
     Dosage: DOSE UNKNOWN, THREE TIMES A DAY
     Route: 048
     Dates: start: 20090528, end: 20090807
  5. CERNILTON [Concomitant]
     Route: 048
     Dates: start: 20050101
  6. FLIVAS [Concomitant]
     Route: 048
     Dates: start: 20050101
  7. URSO 250 [Concomitant]
     Route: 048
  8. UBRETID [Concomitant]
     Route: 048

REACTIONS (2)
  - STAPHYLOCOCCAL INFECTION [None]
  - THROMBOCYTOPENIA [None]
